FAERS Safety Report 13432901 (Version 1)
Quarter: 2017Q2

REPORT INFORMATION
  Report Type: Spontaneous
  Country: US (occurrence: US)
  Receive Date: 20170412
  Receipt Date: 20170412
  Transmission Date: 20170830
  Serious: No
  Sender: FDA-Public Use
  Company Number: US-ELI_LILLY_AND_COMPANY-US201704003112

PATIENT
  Sex: Male

DRUGS (1)
  1. HUMALOG KWIKPEN [Suspect]
     Active Substance: INSULIN LISPRO
     Indication: TYPE 2 DIABETES MELLITUS
     Dosage: 5 U, BID BEFORE BFAST + DINNER
     Route: 058

REACTIONS (3)
  - Diabetes mellitus inadequate control [Recovering/Resolving]
  - Incorrect drug administration duration [Recovered/Resolved]
  - Drug ineffective [Unknown]
